FAERS Safety Report 9248323 (Version 1)
Quarter: 2013Q1

REPORT INFORMATION
  Report Type: Spontaneous
  Country: US (occurrence: None)
  Receive Date: 20121113
  Receipt Date: 20121113
  Transmission Date: 20140127
  Serious: Yes (Other)
  Sender: FDA-Public Use
  Company Number: 1209USA000137

PATIENT
  Sex: Female

DRUGS (1)
  1. TICE BCG LIVE [Suspect]

REACTIONS (2)
  - Hypersensitivity [None]
  - Accidental exposure to product [None]
